FAERS Safety Report 10239799 (Version 3)
Quarter: 2015Q1

REPORT INFORMATION
  Report Type: Spontaneous
  Country: JP (occurrence: JP)
  Receive Date: 20140616
  Receipt Date: 20150129
  Transmission Date: 20150720
  Serious: Yes (Death, Hospitalization)
  Sender: FDA-Public Use
  Company Number: JP-KOWA-2014S1000716

PATIENT
  Age: 85 Year
  Sex: Male
  Weight: 52 kg

DRUGS (15)
  1. ARICEPT [Concomitant]
     Active Substance: DONEPEZIL HYDROCHLORIDE
  2. PARIET [Concomitant]
     Active Substance: RABEPRAZOLE SODIUM
  3. ADALAT [Concomitant]
     Active Substance: NIFEDIPINE
  4. MAINTATE [Concomitant]
     Active Substance: BISOPROLOL FUMARATE
  5. SIGMART [Concomitant]
     Active Substance: NICORANDIL
  6. ARICEPT [Concomitant]
     Active Substance: DONEPEZIL HYDROCHLORIDE
  7. PLETAAL [Concomitant]
     Active Substance: CILOSTAZOL
  8. LIVALO [Suspect]
     Active Substance: PITAVASTATIN CALCIUM
     Indication: ACUTE MYOCARDIAL INFARCTION
     Route: 048
     Dates: start: 20130903, end: 20140601
  9. LASIX [Concomitant]
     Active Substance: FUROSEMIDE
  10. LIVALO [Suspect]
     Active Substance: PITAVASTATIN CALCIUM
     Indication: HYPERLIPIDAEMIA
     Route: 048
     Dates: start: 20130903, end: 20140601
  11. LIVALO [Suspect]
     Active Substance: PITAVASTATIN CALCIUM
     Indication: HYPERLIPIDAEMIA
     Route: 048
     Dates: start: 20140604, end: 20140604
  12. LIVALO [Suspect]
     Active Substance: PITAVASTATIN CALCIUM
     Indication: ACUTE MYOCARDIAL INFARCTION
     Route: 048
     Dates: start: 20140604, end: 20140604
  13. BAYASPIRIN [Concomitant]
     Active Substance: ASPIRIN
  14. RENIVACE [Concomitant]
     Active Substance: ENALAPRIL
  15. SPARALE [Concomitant]

REACTIONS (6)
  - Hyperkalaemia [Unknown]
  - Acute myocardial infarction [None]
  - Depressed level of consciousness [None]
  - Acidosis [None]
  - Circulatory collapse [None]
  - Rhabdomyolysis [Fatal]

NARRATIVE: CASE EVENT DATE: 20140604
